FAERS Safety Report 20951852 (Version 1)
Quarter: 2022Q2

REPORT INFORMATION
  Report Type: Spontaneous
  Country: IT (occurrence: IT)
  Receive Date: 20220613
  Receipt Date: 20220613
  Transmission Date: 20220721
  Serious: Yes (Hospitalization)
  Sender: FDA-Public Use
  Company Number: IT-LUPIN PHARMACEUTICALS INC.-2022-08510

PATIENT
  Age: 17 Year
  Sex: Male

DRUGS (16)
  1. LORAZEPAM [Suspect]
     Active Substance: LORAZEPAM
     Indication: Bipolar disorder
     Dosage: 7.5 MILLIGRAM, QD
     Route: 065
  2. LORAZEPAM [Suspect]
     Active Substance: LORAZEPAM
     Indication: Schizophrenia
  3. OLANZAPINE [Suspect]
     Active Substance: OLANZAPINE
     Indication: Bipolar disorder
     Dosage: UNK
     Route: 065
  4. ARIPIPRAZOLE [Suspect]
     Active Substance: ARIPIPRAZOLE
     Indication: Bipolar disorder
     Dosage: UNK
     Route: 065
  5. RISPERIDONE [Suspect]
     Active Substance: RISPERIDONE
     Indication: Bipolar disorder
     Dosage: 2 MILLIGRAM, QD
     Route: 065
  6. RISPERIDONE [Suspect]
     Active Substance: RISPERIDONE
     Dosage: UNK
     Route: 065
  7. HALOPERIDOL [Suspect]
     Active Substance: HALOPERIDOL
     Indication: Bipolar disorder
     Dosage: UNK
     Route: 065
  8. CHLORPROMAZINE [Suspect]
     Active Substance: CHLORPROMAZINE
     Indication: Bipolar disorder
     Dosage: UNK
     Route: 065
  9. PROMAZINE [Suspect]
     Active Substance: PROMAZINE
     Indication: Bipolar disorder
     Dosage: 20 MILLIGRAM, QD
     Route: 065
  10. PROMAZINE [Suspect]
     Active Substance: PROMAZINE
     Indication: Schizophrenia
  11. ATENOLOL [Suspect]
     Active Substance: ATENOLOL
     Indication: Bipolar disorder
     Dosage: 100 MILLIGRAM, QD
     Route: 065
  12. ATENOLOL [Suspect]
     Active Substance: ATENOLOL
     Indication: Schizophrenia
  13. CARBAMAZEPINE [Concomitant]
     Active Substance: CARBAMAZEPINE
     Indication: Bipolar disorder
     Dosage: 400 MILLIGRAM, QD
     Route: 065
  14. LITHIUM [Concomitant]
     Active Substance: LITHIUM
     Indication: Bipolar disorder
     Dosage: 900 MILLIGRAM, QD (UP TO 900 MG DAILY)
     Route: 065
  15. CLOZAPINE [Concomitant]
     Active Substance: CLOZAPINE
     Indication: Bipolar disorder
     Dosage: UNK
     Route: 065
  16. CLOZAPINE [Concomitant]
     Active Substance: CLOZAPINE
     Indication: Schizophrenia
     Dosage: 700 MILLIGRAM, QD (UP TO 700 MG DAILY)
     Route: 065

REACTIONS (2)
  - Drug ineffective for unapproved indication [Unknown]
  - Off label use [Unknown]
